FAERS Safety Report 15150205 (Version 1)
Quarter: 2018Q3

REPORT INFORMATION
  Report Type: Spontaneous
  Country: DE (occurrence: DE)
  Receive Date: 20180716
  Receipt Date: 20180716
  Transmission Date: 20181010
  Serious: Yes (Hospitalization)
  Sender: FDA-Public Use
  Company Number: DE-US WORLDMEDS, LLC-STA_00016970

PATIENT
  Age: 68 Year
  Sex: Female

DRUGS (1)
  1. APOMORPHINE HYDROCHLORIDE [Suspect]
     Active Substance: APOMORPHINE HYDROCHLORIDE
     Indication: PRODUCT USED FOR UNKNOWN INDICATION
     Dosage: FOR 14 HOURS
     Route: 058
     Dates: start: 20100302

REACTIONS (7)
  - Muscle rigidity [Not Recovered/Not Resolved]
  - Somnolence [Not Recovered/Not Resolved]
  - Depression [Unknown]
  - Narcolepsy [Unknown]
  - Hyperkinesia [Unknown]
  - Fatigue [Not Recovered/Not Resolved]
  - Nodule [Not Recovered/Not Resolved]

NARRATIVE: CASE EVENT DATE: 20100501
